FAERS Safety Report 9234267 (Version 4)
Quarter: 2013Q3

REPORT INFORMATION
  Report Type: Report from Study
  Country: CO (occurrence: CO)
  Receive Date: 20130416
  Receipt Date: 20130719
  Transmission Date: 20140515
  Serious: Yes (Other)
  Sender: FDA-Public Use
  Company Number: CO-ROCHE-1214858

PATIENT
  Age: 23 Year
  Sex: Female
  Weight: 54 kg

DRUGS (4)
  1. LUCENTIS [Suspect]
     Indication: MACULAR DEGENERATION
     Route: 050
     Dates: start: 201302
  2. LUCENTIS [Suspect]
     Route: 050
     Dates: start: 20130305, end: 20130305
  3. APIDRA [Concomitant]
  4. LANTUS [Concomitant]

REACTIONS (2)
  - Eye haemorrhage [Recovered/Resolved]
  - Lens disorder [Recovered/Resolved]
